FAERS Safety Report 5086609-3 (Version None)
Quarter: 2006Q3

REPORT INFORMATION
  Report Type: 
  Country: None (occurrence: None)
  Receive Date: 20060823
  Receipt Date: 20060623
  Transmission Date: 20061208
  Serious: Yes (Disabling, Other)
  Sender: FDA-Public Use
  Company Number: US-MERCK-0606USA04576

PATIENT
  Age: 17 Year
  Sex: Female
  Weight: 84 kg

DRUGS (2)
  1. SINGULAIR [Suspect]
     Indication: ASTHMA
     Route: 048
     Dates: start: 20021229, end: 20060414
  2. SINGULAIR [Suspect]
     Indication: HYPERSENSITIVITY
     Route: 048
     Dates: start: 20021229, end: 20060414

REACTIONS (2)
  - GRAND MAL CONVULSION [None]
  - HEADACHE [None]
